FAERS Safety Report 16464605 (Version 3)
Quarter: 2019Q3

REPORT INFORMATION
  Report Type: Spontaneous
  Country: DE (occurrence: DE)
  Receive Date: 20190621
  Receipt Date: 20190716
  Transmission Date: 20191004
  Serious: Yes (Hospitalization)
  Sender: FDA-Public Use
  Company Number: DE-GUERBET-DE-20190066

PATIENT
  Age: 28 Year
  Sex: Female
  Weight: 67 kg

DRUGS (1)
  1. DOTAREM [Suspect]
     Active Substance: GADOTERATE MEGLUMINE
     Indication: NUCLEAR MAGNETIC RESONANCE IMAGING
     Route: 042
     Dates: start: 20190605, end: 20190605

REACTIONS (14)
  - Dyspnoea [Recovered/Resolved]
  - Lacrimation increased [Recovered/Resolved]
  - Heart rate normal [Recovered/Resolved]
  - Sneezing [Recovered/Resolved]
  - Eye swelling [Recovering/Resolving]
  - Sensation of foreign body [Recovered/Resolved]
  - Swelling of eyelid [Recovering/Resolving]
  - Swelling face [Recovered/Resolved]
  - Burning sensation [Recovered/Resolved]
  - Malaise [Recovered/Resolved]
  - Blood pressure normal [Recovered/Resolved]
  - Nasal congestion [Recovered/Resolved]
  - Adverse reaction [Recovering/Resolving]
  - Rash [Recovered/Resolved]

NARRATIVE: CASE EVENT DATE: 20190605
